FAERS Safety Report 17191130 (Version 1)
Quarter: 2019Q4

REPORT INFORMATION
  Report Type: Spontaneous
  Country: FR (occurrence: FR)
  Receive Date: 20191223
  Receipt Date: 20191223
  Transmission Date: 20200122
  Serious: Yes (Hospitalization)
  Sender: FDA-Public Use
  Company Number: FR-PFIZER INC-2019545248

PATIENT
  Age: 78 Year
  Sex: Male

DRUGS (14)
  1. XANAX [Suspect]
     Active Substance: ALPRAZOLAM
     Indication: BIPOLAR I DISORDER
     Dosage: 0.75 MG, 1X/DAY
     Route: 048
     Dates: start: 2010, end: 20191117
  2. MODOPAR [Concomitant]
     Active Substance: BENSERAZIDE HYDROCHLORIDE\LEVODOPA
  3. DOLIPRANE [Concomitant]
     Active Substance: ACETAMINOPHEN
  4. FINASTERIDE. [Concomitant]
     Active Substance: FINASTERIDE
  5. SPASFON [PHLOROGLUCINOL;TRIMETHYLPHLOROGLUCINOL] [Concomitant]
     Active Substance: PHLOROGLUCINOL\1,3,5-TRIMETHOXYBENZENE
  6. UROREC [Concomitant]
     Active Substance: SILODOSIN
  7. XARELTO [Concomitant]
     Active Substance: RIVAROXABAN
  8. FUROSEMIDE. [Concomitant]
     Active Substance: FUROSEMIDE
  9. LANSOPRAZOLE. [Concomitant]
     Active Substance: LANSOPRAZOLE
  10. MIRTAZAPINE. [Concomitant]
     Active Substance: MIRTAZAPINE
  11. DEPAMIDE [Suspect]
     Active Substance: VALPROMIDE
     Indication: BIPOLAR I DISORDER
     Dosage: 1200 MG, 1X/DAY
     Route: 048
     Dates: start: 2010
  12. MOVICOL [Concomitant]
     Active Substance: POLYETHYLENE GLYCOL 3350\POTASSIUM CHLORIDE\SODIUM BICARBONATE\SODIUM CHLORIDE
  13. XEROQUEL [Suspect]
     Active Substance: QUETIAPINE FUMARATE
     Indication: BIPOLAR I DISORDER
     Dosage: 400 MG, 1X/DAY
     Route: 048
     Dates: start: 2010
  14. NOCTAMIDE [Suspect]
     Active Substance: LORMETAZEPAM
     Indication: BIPOLAR I DISORDER
     Dosage: 2 MG, 1X/DAY
     Route: 048
     Dates: start: 2010, end: 20191117

REACTIONS (3)
  - Neutropenia [Recovering/Resolving]
  - Anaemia [Not Recovered/Not Resolved]
  - Thrombocytopenia [Recovering/Resolving]

NARRATIVE: CASE EVENT DATE: 201911
